FAERS Safety Report 8878596 (Version 1)
Quarter: 2012Q4

REPORT INFORMATION
  Report Type: 
  Country: US (occurrence: US)
  Receive Date: 20121025
  Receipt Date: 20121025
  Transmission Date: 20130627
  Serious: No
  Sender: FDA-Public Use
  Company Number: US-AMGEN-USASP2012015911

PATIENT
  Age: 74 Year
  Sex: Female
  Weight: 58.96 kg

DRUGS (7)
  1. ENBREL [Suspect]
     Indication: RHEUMATOID ARTHRITIS
     Dosage: 50 mg, qwk
     Route: 058
  2. OMEPRAZOLE [Concomitant]
     Dosage: 40 mg, UNK
  3. METHOTREXATE [Concomitant]
     Dosage: 2.5 mg, UNK
  4. ASPIRIN [Concomitant]
     Dosage: 81 mg, UNK
  5. LOPID [Concomitant]
     Dosage: 600 mg, UNK
  6. MULTIVITAMIN                       /00097801/ [Concomitant]
     Dosage: UNK
  7. FOLIC ACID [Concomitant]
     Dosage: 1 mg, UNK

REACTIONS (2)
  - Urinary tract infection [Unknown]
  - Sinusitis [Unknown]
